FAERS Safety Report 7617759-2 (Version None)
Quarter: 2011Q3

REPORT INFORMATION
  Report Type: 
  Country: None (occurrence: None)
  Receive Date: 20110718
  Receipt Date: 20110711
  Transmission Date: 20111222
  Serious: Yes (Other)
  Sender: FDA-Public Use
  Company Number: JP-JNJFOC-20110705815

PATIENT
  Age: 41 Year
  Sex: Female

DRUGS (2)
  1. INVEGA [Suspect]
     Indication: SCHIZOPHRENIA
     Route: 048
     Dates: start: 20110120
  2. EVAMYL [Concomitant]
     Indication: INITIAL INSOMNIA
     Route: 048
     Dates: start: 20100101

REACTIONS (1)
  - BREAST CANCER [None]
